FAERS Safety Report 11521615 (Version 1)
Quarter: 2015Q3

REPORT INFORMATION
  Report Type: Spontaneous
  Country: US (occurrence: US)
  Receive Date: 20150918
  Receipt Date: 20150918
  Transmission Date: 20151125
  Serious: Yes (Other)
  Sender: FDA-Public Use
  Company Number: US-SA-2015SA140113

PATIENT
  Age: 46 Year
  Sex: Female

DRUGS (1)
  1. ICY HOT MEDICATED NO MESS APPLICATOR [Suspect]
     Active Substance: MENTHOL
     Indication: ARTHRALGIA
     Route: 061
     Dates: start: 20150910, end: 20150910

REACTIONS (6)
  - Application site oedema [Unknown]
  - Application site pain [Not Recovered/Not Resolved]
  - Application site exfoliation [Unknown]
  - Application site pain [Unknown]
  - Application site erythema [Unknown]
  - Application site burn [Unknown]

NARRATIVE: CASE EVENT DATE: 20150910
